FAERS Safety Report 22112890 (Version 1)
Quarter: 2023Q1

REPORT INFORMATION
  Report Type: Spontaneous
  Country: US (occurrence: US)
  Receive Date: 20230320
  Receipt Date: 20230320
  Transmission Date: 20230417
  Serious: Yes (Hospitalization)
  Sender: FDA-Public Use
  Company Number: US-BEH-2023156376

PATIENT
  Age: 20 Year
  Sex: Female

DRUGS (10)
  1. HAEGARDA [Suspect]
     Active Substance: HUMAN C1-ESTERASE INHIBITOR
     Dosage: 3800 INTERNATIONAL UNIT, BIW
     Route: 058
     Dates: start: 20221202
  2. BERINERT [Concomitant]
     Active Substance: HUMAN C1-ESTERASE INHIBITOR
     Route: 065
  3. BERINERT [Concomitant]
     Active Substance: HUMAN C1-ESTERASE INHIBITOR
     Route: 065
  4. EPINEPHRINE [Concomitant]
     Active Substance: EPINEPHRINE
     Dosage: 0.3 MILLIGRAM
  5. FLUOCINOLONE ACETONIDE [Concomitant]
     Active Substance: FLUOCINOLONE ACETONIDE
     Route: 058
  6. IBUPROFEN [Concomitant]
     Active Substance: IBUPROFEN
     Dosage: 800 MILLIGRAM
  7. ICATIBANT [Concomitant]
     Active Substance: ICATIBANT ACETATE
  8. NAPROXEN [Concomitant]
     Active Substance: NAPROXEN
     Dosage: 500 MILLIGRAM
  9. SPRINTEC [Concomitant]
     Active Substance: ETHINYL ESTRADIOL\NORGESTIMATE
  10. TRIAMCINOLONE [Concomitant]
     Active Substance: TRIAMCINOLONE

REACTIONS (4)
  - Hereditary angioedema [Recovered/Resolved]
  - No adverse event [Unknown]
  - Product prescribing issue [Unknown]
  - Therapy interrupted [Unknown]

NARRATIVE: CASE EVENT DATE: 20230111
